FAERS Safety Report 11715058 (Version 3)
Quarter: 2015Q4

REPORT INFORMATION
  Report Type: Report from Study
  Country: US (occurrence: US)
  Receive Date: 20151109
  Receipt Date: 20151118
  Transmission Date: 20160304
  Serious: Yes (Hospitalization)
  Sender: FDA-Public Use
  Company Number: US-SA-2015SA175394

PATIENT

DRUGS (5)
  1. ASPIRIN. [Suspect]
     Active Substance: ASPIRIN
     Indication: ANTICOAGULANT THERAPY
     Dosage: LOADING DOSE
     Route: 065
  2. TIROFIBAN [Suspect]
     Active Substance: TIROFIBAN
     Indication: ANTIPLATELET THERAPY
     Dosage: INFUSION PER MIN
     Route: 065
  3. CLOPIDOGREL BISULFATE. [Suspect]
     Active Substance: CLOPIDOGREL BISULFATE
     Indication: ANTICOAGULANT THERAPY
     Route: 065
  4. CLOPIDOGREL BISULFATE. [Suspect]
     Active Substance: CLOPIDOGREL BISULFATE
     Indication: ANTICOAGULANT THERAPY
     Dosage: MAINTENANCE DOSE
     Route: 065
  5. ASPIRIN. [Suspect]
     Active Substance: ASPIRIN
     Indication: ANTICOAGULANT THERAPY
     Dosage: MAINTENANCE DOSE
     Route: 065

REACTIONS (2)
  - Blindness [Recovering/Resolving]
  - Retinal artery occlusion [Unknown]
